FAERS Safety Report 7312054-3 (Version None)
Quarter: 2011Q1

REPORT INFORMATION
  Report Type: 
  Country: None (occurrence: None)
  Receive Date: 20110224
  Receipt Date: 20100605
  Transmission Date: 20110831
  Serious: No
  Sender: FDA-Public Use
  Company Number: US-BRISTOL-MYERS SQUIBB COMPANY-15138506

PATIENT
  Sex: Female
  Weight: 50 kg

DRUGS (4)
  1. TAXOL [Interacting]
     Dosage: INFUSED OVER 60MIN
  2. ALOXI [Suspect]
  3. DEXAMETHASONE SODIUM PHOSPHATE [Suspect]
     Dosage: INFUSED OVER 20MIN
  4. HERCEPTIN [Interacting]
     Dosage: INFUSED OVER 30MIN

REACTIONS (2)
  - FOOD ALLERGY [None]
  - DRUG INTERACTION [None]
